FAERS Safety Report 9378348 (Version 3)
Quarter: 2016Q1

REPORT INFORMATION
  Report Type: Report from Study
  Country: US (occurrence: US)
  Receive Date: 20130701
  Receipt Date: 20160219
  Transmission Date: 20160526
  Serious: Yes (Death, Hospitalization, Other)
  Sender: FDA-Public Use
  Company Number: US-GILEAD-2013-0078305

PATIENT
  Age: 20 Year
  Sex: Male

DRUGS (2)
  1. CAYSTON [Suspect]
     Active Substance: AZTREONAM
     Indication: LOWER RESPIRATORY TRACT INFECTION BACTERIAL
     Dosage: 75 MG, UNK
     Route: 055
     Dates: start: 20101014, end: 20101223
  2. CAYSTON [Suspect]
     Active Substance: AZTREONAM
     Indication: CYSTIC FIBROSIS

REACTIONS (5)
  - Transplant failure [Unknown]
  - Obliterative bronchiolitis [Fatal]
  - Pneumonia [Fatal]
  - Complications of transplanted lung [Fatal]
  - Respiratory failure [Fatal]

NARRATIVE: CASE EVENT DATE: 2010
